FAERS Safety Report 7625758-X (Version None)
Quarter: 2011Q3

REPORT INFORMATION
  Report Type: 
  Country: None (occurrence: None)
  Receive Date: 20110701
  Receipt Date: 20100601
  Transmission Date: 20111222
  Serious: Yes (Other)
  Sender: FDA-Public Use
  Company Number: 7006806

PATIENT
  Age: 49 Year
  Sex: Female

DRUGS (3)
  1. REBIF [Suspect]
     Indication: MULTIPLE SCLEROSIS
     Dosage: 44 MCG, 3 IN 1 WK, SUBCUTANEOUS
     Route: 058
     Dates: start: 20100205
  2. DETROL [Concomitant]
  3. NEURONTIN [Concomitant]

REACTIONS (7)
  - HEADACHE [None]
  - INJECTION SITE INDURATION [None]
  - EYE PAIN [None]
  - INJECTION SITE DISCOLOURATION [None]
  - MULTIPLE SCLEROSIS RELAPSE [None]
  - DIZZINESS [None]
  - VISUAL IMPAIRMENT [None]
